FAERS Safety Report 4336253-8 (Version None)
Quarter: 2004Q2

REPORT INFORMATION
  Report Type: 
  Country: None (occurrence: None)
  Receive Date: 20040407
  Receipt Date: 20040324
  Transmission Date: 20050107
  Serious: Yes (Death)
  Sender: FDA-Public Use
  Company Number: GBS040314598

PATIENT
  Age: 58 Year
  Sex: Female

DRUGS (2)
  1. FORTEO [Suspect]
     Indication: RESPIRATORY FAILURE
  2. FORTEO [Suspect]
     Indication: SPINAL DISORDER

REACTIONS (1)
  - LOWER RESPIRATORY TRACT INFECTION [None]
